FAERS Safety Report 12115022 (Version 1)
Quarter: 2016Q1

REPORT INFORMATION
  Report Type: Report from Study
  Country: US (occurrence: US)
  Receive Date: 20160225
  Receipt Date: 20160225
  Transmission Date: 20160526
  Serious: Yes (Hospitalization)
  Sender: FDA-Public Use
  Company Number: US-EMD SERONO-8013957

PATIENT
  Age: 59 Year
  Sex: Male
  Weight: 109 kg

DRUGS (23)
  1. IMDUR [Concomitant]
     Active Substance: ISOSORBIDE MONONITRATE
     Indication: HYPERTENSION
     Dates: start: 20150214
  2. GABAPENTIN. [Concomitant]
     Active Substance: GABAPENTIN
     Indication: NEUROPATHY PERIPHERAL
     Dates: start: 20150214
  3. GABAPENTIN. [Concomitant]
     Active Substance: GABAPENTIN
     Dates: start: 20141101
  4. IMDUR [Concomitant]
     Active Substance: ISOSORBIDE MONONITRATE
     Dates: start: 20141101
  5. PACLITAXEL ALBUMIN [Suspect]
     Active Substance: PACLITAXEL
     Route: 042
     Dates: start: 20150128, end: 20150128
  6. MAGNESIUM OXIDE. [Concomitant]
     Active Substance: MAGNESIUM OXIDE
     Indication: SUPPLEMENTATION THERAPY
     Dates: start: 20141008
  7. GEMCITABINE [Suspect]
     Active Substance: GEMCITABINE\GEMCITABINE HYDROCHLORIDE
     Indication: PANCREATIC CARCINOMA
     Route: 042
     Dates: start: 20140404, end: 20150128
  8. PACLITAXEL ALBUMIN [Suspect]
     Active Substance: PACLITAXEL
     Indication: PANCREATIC CARCINOMA
     Route: 042
     Dates: start: 20140404
  9. BUMEX [Concomitant]
     Active Substance: BUMETANIDE
     Dates: start: 20141101
  10. JANUMET [Concomitant]
     Active Substance: METFORMIN HYDROCHLORIDE\SITAGLIPTIN PHOSPHATE
     Indication: DIABETES MELLITUS
     Dates: start: 20141111
  11. LEVEMIR [Concomitant]
     Active Substance: INSULIN DETEMIR
     Indication: DIABETES MELLITUS
     Dates: start: 20141101
  12. LEVEMIR [Concomitant]
     Active Substance: INSULIN DETEMIR
     Dates: start: 20141101
  13. METOPROLOL. [Concomitant]
     Active Substance: METOPROLOL
     Dates: start: 20141101
  14. BUMEX [Concomitant]
     Active Substance: BUMETANIDE
     Indication: HYPERTENSION
     Dates: start: 20150213
  15. SPIRONOLACTONE. [Concomitant]
     Active Substance: SPIRONOLACTONE
     Indication: HYPERTENSION
     Dates: start: 20150214
  16. DIGOXIN. [Concomitant]
     Active Substance: DIGOXIN
     Indication: ATRIAL FIBRILLATION
     Dates: start: 20150214
  17. TH-302 [Suspect]
     Active Substance: EVOFOSFAMIDE
     Route: 042
     Dates: start: 20150203
  18. ASA [Concomitant]
     Active Substance: ASPIRIN
     Indication: SUPPLEMENTATION THERAPY
  19. DIGOXIN. [Concomitant]
     Active Substance: DIGOXIN
     Dates: start: 20141101
  20. METOPROLOL. [Concomitant]
     Active Substance: METOPROLOL
     Indication: HYPERTENSION
     Dates: start: 20150214
  21. SPIRONOLACTONE. [Concomitant]
     Active Substance: SPIRONOLACTONE
     Dates: start: 20141101
  22. TH-302 [Suspect]
     Active Substance: EVOFOSFAMIDE
     Indication: PANCREATIC CARCINOMA
     Route: 042
     Dates: start: 20140404
  23. LOSARTAN. [Concomitant]
     Active Substance: LOSARTAN
     Indication: HYPERTENSION
     Dates: start: 20140715

REACTIONS (2)
  - Tachycardia [Unknown]
  - Pyrexia [Unknown]

NARRATIVE: CASE EVENT DATE: 20150224
